FAERS Safety Report 4993358-6 (Version None)
Quarter: 2006Q2

REPORT INFORMATION
  Report Type: 
  Country: None (occurrence: None)
  Receive Date: 20060505
  Receipt Date: 20060426
  Transmission Date: 20061013
  Serious: Yes (Death, Hospitalization)
  Sender: FDA-Public Use
  Company Number: GB-AVENTIS-200612455EU

PATIENT
  Age: 44 Year
  Sex: Male

DRUGS (6)
  1. ENOXAPARIN SODIUM [Suspect]
     Indication: DEEP VEIN THROMBOSIS
     Route: 058
  2. WARFARIN SODIUM [Suspect]
     Indication: DEEP VEIN THROMBOSIS
     Route: 048
  3. WARFARIN SODIUM [Suspect]
  4. PROPRANOLOL [Concomitant]
     Route: 048
  5. INDAPAMIDE [Concomitant]
     Route: 048
  6. AMITRIPTYLINE HCL [Concomitant]
     Indication: DEPRESSION
     Route: 048

REACTIONS (5)
  - BLOOD CREATINE PHOSPHOKINASE INCREASED [None]
  - C-REACTIVE PROTEIN INCREASED [None]
  - INTERNATIONAL NORMALISED RATIO INCREASED [None]
  - MESENTERIC ARTERY THROMBOSIS [None]
  - SKIN NECROSIS [None]
